FAERS Safety Report 7979585-4 (Version None)
Quarter: 2011Q4

REPORT INFORMATION
  Report Type: 
  Country: None (occurrence: None)
  Receive Date: 20111214
  Receipt Date: 20111206
  Transmission Date: 20120403
  Serious: Yes (Other)
  Sender: FDA-Public Use
  Company Number: US-SANOFI-AVENTIS-2011SA079959

PATIENT
  Age: 31 Year
  Sex: Female

DRUGS (2)
  1. LOVENOX [Suspect]
     Route: 065
  2. LOVENOX [Suspect]
     Indication: PULMONARY EMBOLISM
     Route: 065

REACTIONS (4)
  - HEADACHE [None]
  - COAGULOPATHY [None]
  - MATERNAL EXPOSURE DURING PREGNANCY [None]
  - CEREBRAL VENOUS THROMBOSIS [None]
